FAERS Safety Report 8053237-7 (Version None)
Quarter: 2012Q1

REPORT INFORMATION
  Report Type: 
  Country: None (occurrence: None)
  Receive Date: 20120118
  Receipt Date: 20120109
  Transmission Date: 20120608
  Serious: Yes (Hospitalization, Other)
  Sender: FDA-Public Use
  Company Number: US-BAYER-2011-038342

PATIENT
  Age: 45 Year
  Sex: Female

DRUGS (4)
  1. ATENOLOL [Concomitant]
     Route: 048
  2. SYNTHROID [Concomitant]
     Route: 048
  3. YASMIN [Suspect]
     Dosage: UNK
     Dates: start: 19980101, end: 20041201
  4. SKELAXIN [Concomitant]
     Dosage: UNK
     Route: 048
     Dates: start: 20041201

REACTIONS (11)
  - THROMBOSIS [None]
  - PORTAL VEIN THROMBOSIS [None]
  - SPLENIC VEIN THROMBOSIS [None]
  - PULMONARY EMBOLISM [None]
  - FEAR [None]
  - QUALITY OF LIFE DECREASED [None]
  - MESENTERIC VEIN THROMBOSIS [None]
  - ANXIETY [None]
  - ANHEDONIA [None]
  - PAIN [None]
  - LOBAR PNEUMONIA [None]
